FAERS Safety Report 17514912 (Version 1)
Quarter: 2020Q1

REPORT INFORMATION
  Report Type: Spontaneous
  Country: DE (occurrence: DE)
  Receive Date: 20200309
  Receipt Date: 20200309
  Transmission Date: 20200409
  Serious: Yes (Other)
  Sender: FDA-Public Use
  Company Number: DE-SA-2020SA054371

PATIENT
  Age: 61 Year
  Sex: Female
  Weight: 121 kg

DRUGS (1)
  1. LANTUS [Suspect]
     Active Substance: INSULIN GLARGINE
     Dosage: 4 INJECTION DAILY
     Route: 065
     Dates: start: 20160110

REACTIONS (5)
  - Hypokinesia [Unknown]
  - Fluid retention [Unknown]
  - Hunger [Unknown]
  - Inappropriate schedule of product administration [Unknown]
  - Cardiac failure [Unknown]

NARRATIVE: CASE EVENT DATE: 20160110
